FAERS Safety Report 16030437 (Version 1)
Quarter: 2019Q1

REPORT INFORMATION
  Report Type: Spontaneous
  Country: US (occurrence: US)
  Receive Date: 20190304
  Receipt Date: 20190304
  Transmission Date: 20190418
  Serious: Yes (Other)
  Sender: FDA-Public Use
  Company Number: US-PFIZER INC-2019084601

PATIENT
  Age: 59 Year
  Sex: Female
  Weight: 56.7 kg

DRUGS (1)
  1. ADVIL PM [Suspect]
     Active Substance: DIPHENHYDRAMINE CITRATE\IBUPROFEN
     Indication: SLEEP DISORDER
     Dosage: 1 DF, UNK
     Route: 048
     Dates: start: 20190220, end: 20190220

REACTIONS (2)
  - Product physical issue [Unknown]
  - Choking [Recovered/Resolved]

NARRATIVE: CASE EVENT DATE: 20190220
